FAERS Safety Report 18001684 (Version 2)
Quarter: 2020Q3

REPORT INFORMATION
  Report Type: Report from Study
  Country: US (occurrence: US)
  Receive Date: 20200709
  Receipt Date: 20200902
  Transmission Date: 20201103
  Serious: No
  Sender: FDA-Public Use
  Company Number: NVSC2020US193330

PATIENT
  Sex: Male

DRUGS (1)
  1. COSENTYX [Suspect]
     Active Substance: SECUKINUMAB
     Indication: PSORIATIC ARTHROPATHY
     Dosage: 300 MG, QMO
     Route: 058

REACTIONS (7)
  - Fatigue [Unknown]
  - Muscle twitching [Unknown]
  - Feeling abnormal [Unknown]
  - Emotional distress [Unknown]
  - Arthralgia [Unknown]
  - Dyskinesia [Unknown]
  - Drug ineffective [Unknown]
